FAERS Safety Report 9109296 (Version 2)
Quarter: 2013Q1

REPORT INFORMATION
  Report Type: Spontaneous
  Country: JP (occurrence: JP)
  Receive Date: 20130222
  Receipt Date: 20130319
  Transmission Date: 20140127
  Serious: Yes (Other)
  Sender: FDA-Public Use
  Company Number: PHHY2013JP017515

PATIENT
  Age: 57 Year
  Sex: Male

DRUGS (4)
  1. EXFORGE [Suspect]
     Dosage: 1 DF, DAILY
     Route: 048
  2. ARTIST [Concomitant]
     Dosage: UNK UKN, UNK
     Route: 048
  3. NATRIX [Concomitant]
     Dosage: UNK UKN, UNK
     Route: 048
  4. FEBURIC [Concomitant]
     Dosage: UNK UKN, UNK
     Route: 048

REACTIONS (1)
  - Uveitis [Unknown]
